FAERS Safety Report 6221908-0 (Version None)
Quarter: 2009Q2

REPORT INFORMATION
  Report Type: 
  Country: None (occurrence: None)
  Receive Date: 20090608
  Receipt Date: 20090608
  Transmission Date: 20091009
  Serious: Yes (Hospitalization)
  Sender: FDA-Public Use
  Company Number: None

PATIENT
  Sex: Female
  Weight: 86.6 kg

DRUGS (3)
  1. CYTARABINE [Suspect]
     Dosage: 16070 MG
  2. MYLOTARG [Suspect]
     Dosage: 6 MG
  3. MITOXANTRONE HYDROCHLORIDE [Suspect]
     Dosage: 24 MG

REACTIONS (8)
  - BACTERIA BLOOD IDENTIFIED [None]
  - DIALYSIS [None]
  - FLUID OVERLOAD [None]
  - HAEMODIALYSIS [None]
  - MULTI-ORGAN FAILURE [None]
  - PANCYTOPENIA [None]
  - PNEUMONIA [None]
  - RENAL FAILURE ACUTE [None]
